FAERS Safety Report 17400893 (Version 1)
Quarter: 2020Q1

REPORT INFORMATION
  Report Type: Spontaneous
  Country: IT (occurrence: IT)
  Receive Date: 20200211
  Receipt Date: 20200211
  Transmission Date: 20200409
  Serious: Yes (Hospitalization)
  Sender: FDA-Public Use
  Company Number: IT-JNJFOC-20200205612

PATIENT
  Age: 21 Year
  Sex: Female

DRUGS (1)
  1. REACTINE 5 MG + 120 MG PROLONGED RELEASE TABLET [Suspect]
     Active Substance: CETIRIZINE HYDROCHLORIDE\PSEUDOEPHEDRINE HYDROCHLORIDE
     Indication: HYPERSENSITIVITY
     Dosage: IN TOTAL?MEDICATION ERROR
     Route: 048
     Dates: start: 20200111, end: 20200115

REACTIONS (4)
  - Vomiting [Recovering/Resolving]
  - Overdose [Recovering/Resolving]
  - Chest discomfort [Recovering/Resolving]
  - Tachycardia [Recovering/Resolving]

NARRATIVE: CASE EVENT DATE: 20200116
